FAERS Safety Report 6529425-5 (Version None)
Quarter: 2010Q1

REPORT INFORMATION
  Report Type: 
  Country: None (occurrence: None)
  Receive Date: 20100107
  Receipt Date: 20091228
  Transmission Date: 20100710
  Serious: Yes (Other)
  Sender: FDA-Public Use
  Company Number: US-ELI_LILLY_AND_COMPANY-US200912005894

PATIENT
  Age: 87 Year
  Sex: Male

DRUGS (2)
  1. FORTEO [Suspect]
     Indication: BONE DISORDER
     Dates: end: 20091201
  2. FORTEO [Suspect]
     Dates: start: 20091228

REACTIONS (1)
  - LOSS OF CONSCIOUSNESS [None]
